FAERS Safety Report 15582506 (Version 1)
Quarter: 2018Q4

REPORT INFORMATION
  Report Type: Spontaneous
  Country: US (occurrence: US)
  Receive Date: 20181104
  Receipt Date: 20181104
  Transmission Date: 20190205
  Serious: Yes (Disabling)
  Sender: FDA-Public Use
  Company Number: None

PATIENT
  Age: 26 Year
  Sex: Female
  Weight: 66.6 kg

DRUGS (4)
  1. AMBIEN [Concomitant]
     Active Substance: ZOLPIDEM TARTRATE
  2. ZOLOFT [Concomitant]
     Active Substance: SERTRALINE HYDROCHLORIDE
  3. LUPRON [Suspect]
     Active Substance: LEUPROLIDE ACETATE
     Indication: ENDOMETRIOSIS
     Dosage: ?          OTHER FREQUENCY:ONCE MONTHLY;?
     Route: 030
     Dates: start: 20161201, end: 20170301
  4. APRI [Concomitant]
     Active Substance: DESOGESTREL\ETHINYL ESTRADIOL

REACTIONS (10)
  - Fatigue [None]
  - Malaise [None]
  - Anxiety [None]
  - Impaired work ability [None]
  - Sleep disorder [None]
  - Weight increased [None]
  - Loss of personal independence in daily activities [None]
  - Partner stress [None]
  - Nausea [None]
  - Depression [None]

NARRATIVE: CASE EVENT DATE: 20161201
